FAERS Safety Report 13655346 (Version 1)
Quarter: 2017Q2

REPORT INFORMATION
  Report Type: Spontaneous
  Country: FR (occurrence: FR)
  Receive Date: 20170615
  Receipt Date: 20170615
  Transmission Date: 20170830
  Serious: Yes (Other)
  Sender: FDA-Public Use
  Company Number: FR-009507513-1706FRA005222

PATIENT
  Sex: Male

DRUGS (6)
  1. VIREAD [Suspect]
     Active Substance: TENOFOVIR DISOPROXIL FUMARATE
     Indication: HIV INFECTION
     Dosage: 300 MG, QD
     Route: 048
     Dates: start: 20020219, end: 20130708
  2. INTELENCE [Suspect]
     Active Substance: ETRAVIRINE
     Indication: HIV INFECTION
     Dosage: 2 DF, Q12H
     Route: 048
     Dates: start: 20101018
  3. PREZISTA [Suspect]
     Active Substance: DARUNAVIR ETHANOLATE
     Indication: HIV INFECTION
     Dosage: 2 DF, Q12H
     Route: 048
     Dates: start: 20071201
  4. EPIVIR [Suspect]
     Active Substance: LAMIVUDINE
     Indication: HIV INFECTION
     Dosage: 1 DF, QD
     Route: 048
     Dates: start: 19941206
  5. VIREAD [Suspect]
     Active Substance: TENOFOVIR DISOPROXIL FUMARATE
     Dosage: 300 MG, QD
     Route: 048
     Dates: start: 20140429
  6. ISENTRESS [Suspect]
     Active Substance: RALTEGRAVIR POTASSIUM
     Indication: HIV INFECTION
     Dosage: 2 DF, Q12H
     Route: 048
     Dates: start: 20071201

REACTIONS (3)
  - Condition aggravated [Not Recovered/Not Resolved]
  - Overdose [Unknown]
  - Peripheral sensory neuropathy [Not Recovered/Not Resolved]
